FAERS Safety Report 5536903-4 (Version None)
Quarter: 2007Q4

REPORT INFORMATION
  Report Type: 
  Country: None (occurrence: None)
  Receive Date: 20071207
  Receipt Date: 20071127
  Transmission Date: 20080405
  Serious: Yes (Hospitalization, Other)
  Sender: FDA-Public Use
  Company Number: PHHO2005GB10271

PATIENT
  Age: 13 Year
  Sex: Female
  Weight: 60 kg

DRUGS (1)
  1. IMATINIB [Suspect]
     Indication: ACUTE LYMPHOCYTIC LEUKAEMIA
     Dosage: 450 MG, QD
     Route: 048
     Dates: start: 20050314, end: 20050516

REACTIONS (8)
  - BLOOD CREATININE INCREASED [None]
  - C-REACTIVE PROTEIN INCREASED [None]
  - HYDRONEPHROSIS [None]
  - HYPERTENSION [None]
  - PLEURAL EFFUSION [None]
  - RETROPERITONEAL FIBROSIS [None]
  - URETERAL STENT INSERTION [None]
  - URETERIC OBSTRUCTION [None]
